FAERS Safety Report 4331588-7 (Version None)
Quarter: 2004Q2

REPORT INFORMATION
  Report Type: 
  Country: None (occurrence: None)
  Receive Date: 20040405
  Receipt Date: 20040322
  Transmission Date: 20050107
  Serious: Yes (Hospitalization)
  Sender: FDA-Public Use
  Company Number: FR-MERCK-0403FRA00097

PATIENT
  Age: 63 Year
  Sex: Male

DRUGS (7)
  1. DEXAMETHASONE AND NEOMYCIN SULFATE AND POLYMYXIN B SULFATE [Concomitant]
     Indication: EYE PRURITUS
     Route: 047
     Dates: start: 19991015
  2. DEXAMETHASONE SODIUM PHOSPHATE AND NEOMYCIN SULFATE [Suspect]
     Indication: CONJUNCTIVITIS
     Route: 047
     Dates: start: 19991017
  3. KETOROLAC TROMETHAMINE [Concomitant]
     Indication: EYE PRURITUS
     Route: 047
     Dates: start: 19991014
  4. NORFLOXACIN [Concomitant]
     Indication: CONJUNCTIVITIS
     Route: 047
     Dates: start: 19991017
  5. PREDNISOLONE [Concomitant]
     Indication: EYE PRURITUS
     Route: 047
     Dates: start: 19991011, end: 19991013
  6. PREDNISOLONE [Suspect]
     Indication: PRURITUS
     Route: 048
     Dates: start: 19991017
  7. PREDNISOLONE [Suspect]
     Indication: PURPURA
     Route: 048
     Dates: start: 19991017

REACTIONS (8)
  - CONJUNCTIVITIS ALLERGIC [None]
  - DISEASE RECURRENCE [None]
  - EYE PRURITUS [None]
  - FACE OEDEMA [None]
  - LEUKOCYTOCLASTIC VASCULITIS [None]
  - PRURITUS GENERALISED [None]
  - RASH MACULO-PAPULAR [None]
  - SKIN TEST POSITIVE [None]
